FAERS Safety Report 5327178-X (Version None)
Quarter: 2007Q2

REPORT INFORMATION
  Report Type: 
  Country: None (occurrence: None)
  Receive Date: 20070517
  Receipt Date: 20070507
  Transmission Date: 20071010
  Serious: Yes (Other)
  Sender: FDA-Public Use
  Company Number: BR-ABBOTT-06P-020-0351241-00

PATIENT
  Sex: Female
  Weight: 75 kg

DRUGS (7)
  1. HUMIRA [Suspect]
     Indication: RHEUMATOID ARTHRITIS
     Route: 058
     Dates: start: 20041101
  2. UNKNOWN [Concomitant]
     Indication: HYPERTENSION
     Route: 048
  3. QUITONEL [Concomitant]
     Indication: OSTEOPOROSIS
     Route: 048
  4. UNKNOWN MAGISTRAL FORMULA [Concomitant]
     Indication: RHEUMATOID ARTHRITIS
     Route: 048
  5. MIRTAX [Concomitant]
     Indication: DRUG USE FOR UNKNOWN INDICATION
     Dates: start: 20060101
  6. CALCITONIN-SALMON [Concomitant]
     Indication: DEPRESSION
     Route: 048
     Dates: start: 20060101
  7. CALCIUM CHLORIDE [Concomitant]
     Indication: OSTEOPOROSIS
     Route: 048

REACTIONS (4)
  - ARTHRALGIA [None]
  - FRACTURE [None]
  - HAEMANGIOMA OF LIVER [None]
  - OEDEMA PERIPHERAL [None]
